FAERS Safety Report 19047469 (Version 1)
Quarter: 2021Q1

REPORT INFORMATION
  Report Type: Spontaneous
  Country: UA (occurrence: UA)
  Receive Date: 20210323
  Receipt Date: 20210323
  Transmission Date: 20210420
  Serious: Yes (Other)
  Sender: FDA-Public Use
  Company Number: UA-TEVA-2021-UA-1894237

PATIENT
  Age: 30 Year
  Sex: Female

DRUGS (2)
  1. ENTEROL [Concomitant]
     Indication: PROBIOTIC THERAPY
  2. SUMAMED [Suspect]
     Active Substance: AZITHROMYCIN ANHYDROUS
     Indication: RESPIRATORY TRACT INFECTION VIRAL
     Dosage: 500 MILLIGRAM DAILY;
     Route: 065

REACTIONS (2)
  - Pneumonia [Unknown]
  - Abdominal pain upper [Recovered/Resolved]
